FAERS Safety Report 5763943-2 (Version None)
Quarter: 2008Q2

REPORT INFORMATION
  Report Type: 
  Country: None (occurrence: None)
  Receive Date: 20080606
  Receipt Date: 20080606
  Transmission Date: 20081010
  Serious: Yes (Other)
  Sender: FDA-Public Use
  Company Number: None

PATIENT
  Age: 27 Year
  Sex: Female
  Weight: 74.8435 kg

DRUGS (1)
  1. CREST PRO HEALTH CREST [Suspect]
     Dosage: AFTER BRUSHING PO
     Route: 048
     Dates: start: 20080513, end: 20080605

REACTIONS (2)
  - AGEUSIA [None]
  - HYPOAESTHESIA [None]
